FAERS Safety Report 5311594-6 (Version None)
Quarter: 2007Q2

REPORT INFORMATION
  Report Type: 
  Country: None (occurrence: None)
  Receive Date: 20070430
  Receipt Date: 20061101
  Transmission Date: 20071010
  Serious: No
  Sender: FDA-Public Use
  Company Number: 2006UW18335

PATIENT
  Age: 52 Year
  Sex: Male
  Weight: 76.4 kg

DRUGS (1)
  1. NEXIUM [Suspect]
     Indication: GASTROOESOPHAGEAL REFLUX DISEASE
     Route: 042
     Dates: start: 20060831, end: 20060901

REACTIONS (3)
  - INJECTION SITE INDURATION [None]
  - INJECTION SITE IRRITATION [None]
  - THROMBOPHLEBITIS [None]
